FAERS Safety Report 9100577 (Version 3)
Quarter: 2013Q4

REPORT INFORMATION
  Report Type: Report from Study
  Country: US (occurrence: US)
  Receive Date: 20130215
  Receipt Date: 20131108
  Transmission Date: 20140711
  Serious: Yes (Other)
  Sender: FDA-Public Use
  Company Number: PHEH2013US003494

PATIENT
  Age: 45 Year
  Sex: Female
  Weight: 58.96 kg

DRUGS (6)
  1. GILENYA [Suspect]
     Indication: MULTIPLE SCLEROSIS
     Dosage: 0.5 MG, QD
     Route: 048
     Dates: start: 20111110
  2. LEXAPRO [Concomitant]
     Indication: AFFECTIVE DISORDER
     Dosage: 10 MG, UNK
     Dates: start: 2011
  3. PERCOCET [Concomitant]
     Indication: PAIN
     Route: 048
     Dates: start: 2011
  4. NEURONTIN [Concomitant]
     Indication: PAIN
     Dosage: 300 MG, UNK
     Dates: start: 2011
  5. COUMADINE [Concomitant]
     Indication: PULMONARY EMBOLISM
     Dosage: 5 MG, UNK
     Route: 048
     Dates: start: 2011
  6. AMBIEN [Concomitant]
     Indication: INSOMNIA
     Dosage: 10 MG, UNK
     Route: 048
     Dates: start: 2011

REACTIONS (1)
  - Central nervous system lesion [Not Recovered/Not Resolved]
